FAERS Safety Report 11216999 (Version 2)
Quarter: 2015Q3

REPORT INFORMATION
  Report Type: Spontaneous
  Country: US (occurrence: US)
  Receive Date: 20150624
  Receipt Date: 20150716
  Transmission Date: 20151125
  Serious: Yes (Hospitalization)
  Sender: FDA-Public Use
  Company Number: US-ACTELION-A-NJ2015-119665

PATIENT
  Age: 55 Year
  Sex: Female

DRUGS (3)
  1. TRACLEER [Suspect]
     Active Substance: BOSENTAN
     Indication: PULMONARY ARTERIAL HYPERTENSION
     Dosage: UNK
     Route: 048
  2. SILDENAFIL. [Concomitant]
     Active Substance: SILDENAFIL
  3. VELETRI [Suspect]
     Active Substance: EPOPROSTENOL
     Indication: PULMONARY ARTERIAL HYPERTENSION
     Dosage: 108 NG/KG, PER MIN
     Route: 042

REACTIONS (8)
  - Fall [Unknown]
  - Device occlusion [Unknown]
  - Muscular weakness [Unknown]
  - Device leakage [Unknown]
  - Pulmonary arterial hypertension [Unknown]
  - Catheter placement [Unknown]
  - Pneumothorax [Unknown]
  - Device issue [Unknown]

NARRATIVE: CASE EVENT DATE: 20150706
